FAERS Safety Report 5887977-2 (Version None)
Quarter: 2008Q3

REPORT INFORMATION
  Report Type: 
  Country: None (occurrence: None)
  Receive Date: 20080918
  Receipt Date: 20080911
  Transmission Date: 20090109
  Serious: Yes (Other)
  Sender: FDA-Public Use
  Company Number: B0537481A

PATIENT
  Age: 79 Year
  Sex: Male

DRUGS (1)
  1. REQUIP XL [Suspect]
     Indication: PARKINSON'S DISEASE
     Route: 065

REACTIONS (2)
  - ABNORMAL DREAMS [None]
  - HALLUCINATION [None]
